FAERS Safety Report 23568814 (Version 1)
Quarter: 2024Q1

REPORT INFORMATION
  Report Type: Spontaneous
  Country: US (occurrence: US)
  Receive Date: 20240227
  Receipt Date: 20240227
  Transmission Date: 20240410
  Serious: No
  Sender: FDA-Public Use
  Company Number: US-TEVA-VS-3141581

PATIENT
  Age: 71 Year
  Sex: Female

DRUGS (2)
  1. AJOVY [Suspect]
     Active Substance: FREMANEZUMAB-VFRM
     Route: 065
     Dates: start: 202306
  2. AJOVY [Suspect]
     Active Substance: FREMANEZUMAB-VFRM

REACTIONS (3)
  - Migraine [Unknown]
  - Device leakage [Unknown]
  - Incorrect dose administered [Unknown]

NARRATIVE: CASE EVENT DATE: 20231001
